FAERS Safety Report 7399686-1 (Version None)
Quarter: 2011Q2

REPORT INFORMATION
  Report Type: 
  Country: None (occurrence: None)
  Receive Date: 20110407
  Receipt Date: 20110401
  Transmission Date: 20111010
  Serious: No
  Sender: FDA-Public Use
  Company Number: US-PFIZER INC-2011035793

PATIENT
  Sex: Female

DRUGS (9)
  1. FOSAMAX [Concomitant]
     Dosage: 70 MG, WEEKLY
  2. PLAVIX [Concomitant]
     Dosage: 75 MG, 1X/DAY
  3. COREG [Concomitant]
     Dosage: 3.125 MG, 2X/DAY
  4. METHOTREXATE [Concomitant]
     Dosage: 3 TABLETS, WEEKLY
  5. NORVASC [Concomitant]
     Dosage: 10 MG, 1X/DAY
  6. NEURONTIN [Suspect]
     Indication: CONVULSION
     Dosage: 1ML SOLUTION IN MORNING AND 3ML SOLUTION AT NIGHT
     Dates: start: 20100713
  7. WARFARIN [Concomitant]
     Dosage: 4 MG, 1X/DAY
  8. ZOCOR [Concomitant]
     Dosage: 20 MG, 1X/DAY
  9. AMIODARONE [Concomitant]
     Dosage: 200 MG, 1X/DAY

REACTIONS (2)
  - PRODUCT TASTE ABNORMAL [None]
  - THROAT IRRITATION [None]
